FAERS Safety Report 6311057-5 (Version None)
Quarter: 2009Q3

REPORT INFORMATION
  Report Type: 
  Country: None (occurrence: None)
  Receive Date: 20090817
  Receipt Date: 20090809
  Transmission Date: 20100115
  Serious: Yes (Other)
  Sender: FDA-Public Use
  Company Number: BR-BAYER-200920284LA

PATIENT
  Age: 25 Year
  Sex: Male

DRUGS (1)
  1. BETAFERON [Suspect]
     Indication: MULTIPLE SCLEROSIS
     Dosage: CONSUMER USES BETAJECT
     Route: 058
     Dates: start: 20090805

REACTIONS (5)
  - DELIRIUM [None]
  - MUSCLE FATIGUE [None]
  - PAIN [None]
  - PYREXIA [None]
  - TREMOR [None]
